FAERS Safety Report 8857793 (Version 1)
Quarter: 2012Q4

REPORT INFORMATION
  Report Type: 
  Country: US (occurrence: US)
  Receive Date: 20121024
  Receipt Date: 20121024
  Transmission Date: 20130627
  Serious: No
  Sender: FDA-Public Use
  Company Number: US-ASTRAZENECA-2012SE77231

PATIENT
  Age: 83 Year
  Sex: Female
  Weight: 66.7 kg

DRUGS (6)
  1. NEXIUM [Suspect]
     Route: 048
     Dates: start: 20121005
  2. PRILOSEC OTC [Suspect]
     Route: 048
  3. CYCLOSPORINE [Concomitant]
  4. URSO [Concomitant]
  5. ZETIA [Concomitant]
  6. DIGOXIN [Concomitant]

REACTIONS (4)
  - Weight increased [Unknown]
  - Gastric dilatation [Unknown]
  - Urticaria chronic [Unknown]
  - Drug ineffective [Unknown]
